FAERS Safety Report 10731840 (Version 1)
Quarter: 2015Q1

REPORT INFORMATION
  Report Type: Spontaneous
  Country: US (occurrence: US)
  Receive Date: 20150123
  Receipt Date: 20150123
  Transmission Date: 20150721
  Serious: Yes (Other)
  Sender: FDA-Public Use
  Company Number: US-AMGEN-USASP2015004856

PATIENT
  Age: 56 Year
  Sex: Female

DRUGS (2)
  1. ENBREL [Suspect]
     Active Substance: ETANERCEPT
     Indication: ANKYLOSING SPONDYLITIS
     Dosage: 50 MG, QWK
     Route: 065
     Dates: start: 20141024, end: 20150109
  2. ENBREL [Suspect]
     Active Substance: ETANERCEPT
     Indication: RHEUMATOID ARTHRITIS

REACTIONS (19)
  - Body height decreased [Unknown]
  - Dyspnoea [Not Recovered/Not Resolved]
  - Muscle spasms [Not Recovered/Not Resolved]
  - Nerve compression [Unknown]
  - Injection site haemorrhage [Not Recovered/Not Resolved]
  - Injection site pain [Not Recovered/Not Resolved]
  - Mobility decreased [Recovered/Resolved]
  - Pain [Unknown]
  - Myalgia [Unknown]
  - Gait disturbance [Unknown]
  - Nail disorder [Not Recovered/Not Resolved]
  - Cyst [Unknown]
  - Dysstasia [Unknown]
  - Injection site extravasation [Not Recovered/Not Resolved]
  - Mass [Recovered/Resolved]
  - Sleep disorder [Recovered/Resolved]
  - Muscle disorder [Unknown]
  - Rheumatoid arthritis [Not Recovered/Not Resolved]
  - Injection site mass [Not Recovered/Not Resolved]

NARRATIVE: CASE EVENT DATE: 2014
